FAERS Safety Report 18349040 (Version 1)
Quarter: 2020Q4

REPORT INFORMATION
  Report Type: Spontaneous
  Country: SE (occurrence: SE)
  Receive Date: 20201006
  Receipt Date: 20201006
  Transmission Date: 20210114
  Serious: Yes (Hospitalization)
  Sender: FDA-Public Use
  Company Number: SE-COEPTIS PHARMACEUTICALS, INC.-COE-2020-000045

PATIENT
  Age: 70 Year
  Sex: Female

DRUGS (5)
  1. AMLODIPINE [Suspect]
     Active Substance: AMLODIPINE BESYLATE
  2. PROPIOMAZINE [Suspect]
     Active Substance: PROPIOMAZINE
  3. OXAZEPAM. [Suspect]
     Active Substance: OXAZEPAM
  4. CITALOPRAM [Suspect]
     Active Substance: CITALOPRAM HYDROBROMIDE
  5. CANDESARTAN. [Suspect]
     Active Substance: CANDESARTAN

REACTIONS (3)
  - Overdose [Recovering/Resolving]
  - Non-cardiogenic pulmonary oedema [None]
  - Shock [Recovering/Resolving]
